FAERS Safety Report 24378527 (Version 1)
Quarter: 2024Q3

REPORT INFORMATION
  Report Type: Spontaneous
  Country: US (occurrence: None)
  Receive Date: 20240928
  Receipt Date: 20240928
  Transmission Date: 20241017
  Serious: Yes (Hospitalization)
  Sender: Public
  Company Number: None

PATIENT
  Age: 81 Year
  Sex: Male

DRUGS (3)
  1. FUROSEMIDE [Suspect]
     Active Substance: FUROSEMIDE
     Dosage: DAILY ORAL
     Route: 048
     Dates: start: 20230130, end: 20240801
  2. VITAMIN C [Suspect]
     Active Substance: ASCORBIC ACID
  3. GABAPENTIN [Suspect]
     Active Substance: GABAPENTIN

REACTIONS (3)
  - Asthenia [None]
  - Gait inability [None]
  - Therapy cessation [None]

NARRATIVE: CASE EVENT DATE: 20240601
